FAERS Safety Report 8063578-5 (Version None)
Quarter: 2012Q1

REPORT INFORMATION
  Report Type: 
  Country: None (occurrence: None)
  Receive Date: 20120123
  Receipt Date: 20120113
  Transmission Date: 20120608
  Serious: Yes (Other)
  Sender: FDA-Public Use
  Company Number: US-BAYER-2011-086046

PATIENT
  Age: 24 Year
  Sex: Female
  Weight: 104.31 kg

DRUGS (3)
  1. IBUPROFEN (ADVIL) [Concomitant]
     Dosage: UNK
     Dates: start: 19960101
  2. YASMIN [Suspect]
     Indication: CONTRACEPTION
     Dosage: UNK
     Route: 048
     Dates: start: 20050201, end: 20060601
  3. MOTRIN [Concomitant]
     Dosage: UNK
     Dates: start: 19950101

REACTIONS (5)
  - INJURY [None]
  - PAIN [None]
  - GASTROINTESTINAL DISORDER POSTOPERATIVE [None]
  - CHOLELITHIASIS [None]
  - EMOTIONAL DISTRESS [None]
